FAERS Safety Report 12979654 (Version 1)
Quarter: 2016Q4

REPORT INFORMATION
  Report Type: Spontaneous
  Country: US (occurrence: US)
  Receive Date: 20161128
  Receipt Date: 20161128
  Transmission Date: 20170207
  Serious: Yes (Hospitalization)
  Sender: FDA-Public Use
  Company Number: US-BAYER-2016-223680

PATIENT
  Age: 66 Year
  Sex: Female

DRUGS (1)
  1. STIVARGA [Suspect]
     Active Substance: REGORAFENIB
     Indication: COLON CANCER METASTATIC
     Dosage: 160 MG, QD
     Dates: start: 20161110, end: 201611

REACTIONS (5)
  - Rash generalised [None]
  - Rash [None]
  - Pyrexia [None]
  - Drug dose omission [None]
  - Pyrexia [None]

NARRATIVE: CASE EVENT DATE: 20161113
